FAERS Safety Report 4419989-X (Version None)
Quarter: 2004Q3

REPORT INFORMATION
  Report Type: 
  Country: None (occurrence: None)
  Receive Date: 20040805
  Receipt Date: 20040805
  Transmission Date: 20050211
  Serious: No
  Sender: FDA-Public Use
  Company Number: None

PATIENT
  Age: 90 Year
  Sex: Female
  Weight: 74.8435 kg

DRUGS (1)
  1. FERRLECIT [Suspect]
     Indication: ANAEMIA
     Dosage: 125 MG QD X 3 INTRAVENOUS
     Route: 042
     Dates: start: 20040802, end: 20040802

REACTIONS (2)
  - DIZZINESS [None]
  - RESPIRATORY DISTRESS [None]
